FAERS Safety Report 5002062-X (Version None)
Quarter: 2006Q2

REPORT INFORMATION
  Report Type: 
  Country: None (occurrence: None)
  Receive Date: 20060515
  Receipt Date: 20060503
  Transmission Date: 20061013
  Serious: Yes (Hospitalization)
  Sender: FDA-Public Use
  Company Number: US-MERCK-0605USA00855

PATIENT
  Age: 51 Year
  Sex: Female
  Weight: 105 kg

DRUGS (15)
  1. VIOXX [Suspect]
     Indication: ARTHRITIS
     Route: 048
     Dates: start: 19990701, end: 20040901
  2. VIOXX [Suspect]
     Route: 048
     Dates: start: 19990701, end: 20040901
  3. GLUCOPHAGE [Concomitant]
     Route: 065
  4. COVERA-HS [Concomitant]
     Route: 065
  5. PROZAC [Concomitant]
     Route: 065
  6. NEURONTIN [Concomitant]
     Route: 065
  7. COUMADIN [Concomitant]
     Route: 065
  8. AVANDIA [Concomitant]
     Route: 065
  9. CIPRO [Concomitant]
     Route: 065
  10. PRILOSEC [Concomitant]
     Route: 065
  11. HUMULIN [Concomitant]
     Route: 065
  12. NIZORAL [Concomitant]
     Route: 065
  13. APAP TAB [Concomitant]
     Route: 065
  14. BUTTE [Concomitant]
     Route: 065
  15. [THERAPY UNSPECIFIED] [Concomitant]
     Route: 065

REACTIONS (1)
  - CEREBROVASCULAR ACCIDENT [None]
